FAERS Safety Report 7141448-4 (Version None)
Quarter: 2010Q4

REPORT INFORMATION
  Report Type: 
  Country: None (occurrence: None)
  Receive Date: 20101207
  Receipt Date: 20101125
  Transmission Date: 20110411
  Serious: Yes (Hospitalization)
  Sender: FDA-Public Use
  Company Number: GB-JNJFOC-20100203623

PATIENT
  Age: 40 Year
  Weight: 91 kg

DRUGS (4)
  1. REMICADE [Suspect]
     Indication: RHEUMATOID ARTHRITIS
     Dosage: 560 (UNITS UNSPECIFIED)
     Route: 042
  2. METHOTREXATE [Concomitant]
  3. ARTHROTEC [Concomitant]
  4. FOLIC ACID [Concomitant]

REACTIONS (1)
  - TUBERCULOSIS [None]
